FAERS Safety Report 16849908 (Version 1)
Quarter: 2019Q3

REPORT INFORMATION
  Report Type: Spontaneous
  Country: BE (occurrence: BE)
  Receive Date: 20190925
  Receipt Date: 20190925
  Transmission Date: 20191005
  Serious: Yes (Other)
  Sender: FDA-Public Use
  Company Number: BE-TEVA-2019-BE-1113667

PATIENT
  Sex: Female

DRUGS (3)
  1. PACLITAXEL. [Suspect]
     Active Substance: PACLITAXEL
     Dosage: CARBOTAXOL SCHEME (WEEKLY)
     Route: 065
  2. LONQUEX 6 MG/ML [Suspect]
     Active Substance: LIPEGFILGRASTIM
     Route: 065
  3. CARBOPLATIN. [Suspect]
     Active Substance: CARBOPLATIN
     Dosage: CARBOTAXOL SCHEME (WEEKLY)
     Route: 065

REACTIONS (1)
  - Febrile neutropenia [Recovering/Resolving]
